FAERS Safety Report 6148463-8 (Version None)
Quarter: 2009Q2

REPORT INFORMATION
  Report Type: 
  Country: None (occurrence: None)
  Receive Date: 20090408
  Receipt Date: 20090327
  Transmission Date: 20091009
  Serious: Yes (Death)
  Sender: FDA-Public Use
  Company Number: GR-TEVA-190589ISR

PATIENT
  Age: 74 Year
  Sex: Male
  Weight: 67 kg

DRUGS (6)
  1. CISPLATIN [Suspect]
     Indication: HEAD AND NECK CANCER
     Route: 042
     Dates: start: 20070402, end: 20070516
  2. CETUXIMAB [Suspect]
     Indication: HEAD AND NECK CANCER
     Route: 042
     Dates: start: 20070402, end: 20070516
  3. GLICLAZIDE [Concomitant]
     Indication: DIABETES MELLITUS
     Route: 048
     Dates: start: 20070504, end: 20080115
  4. FUROSEMIDE [Concomitant]
     Route: 048
     Dates: start: 20040615, end: 20080115
  5. NIFEDIPINE [Concomitant]
     Route: 048
     Dates: start: 20040115, end: 20080115
  6. ACETYLSALICYLIC ACID [Concomitant]
     Route: 048
     Dates: start: 20040615, end: 20080115

REACTIONS (1)
  - LARYNGEAL CANCER [None]
